FAERS Safety Report 8197586-0 (Version None)
Quarter: 2012Q1

REPORT INFORMATION
  Report Type: 
  Country: None (occurrence: None)
  Receive Date: 20120309
  Receipt Date: 20120224
  Transmission Date: 20120608
  Serious: Yes (Other)
  Sender: FDA-Public Use
  Company Number: US-ROCHE-1043144

PATIENT
  Sex: Female
  Weight: 118.04 kg

DRUGS (5)
  1. SYMBICORT [Concomitant]
     Indication: ASTHMA
  2. PREDNISONE [Concomitant]
     Dates: start: 20120222
  3. XOLAIR [Suspect]
     Indication: ASTHMA
     Route: 058
     Dates: start: 20120222
  4. BENADRYL [Concomitant]
     Dates: start: 20120222
  5. ALBUTEROL [Concomitant]

REACTIONS (8)
  - ANAPHYLACTIC REACTION [None]
  - HYPOTENSION [None]
  - ABDOMINAL PAIN UPPER [None]
  - DIZZINESS [None]
  - LOSS OF CONSCIOUSNESS [None]
  - HEART RATE DECREASED [None]
  - OXYGEN SATURATION DECREASED [None]
  - THROAT TIGHTNESS [None]
